FAERS Safety Report 16285569 (Version 1)
Quarter: 2019Q2

REPORT INFORMATION
  Report Type: Spontaneous
  Country: US (occurrence: US)
  Receive Date: 20190506
  Receipt Date: 20190506
  Transmission Date: 20190711
  Serious: Yes (Hospitalization)
  Sender: FDA-Public Use
  Company Number: None

PATIENT
  Age: 28 Year
  Sex: Female
  Weight: 85.5 kg

DRUGS (6)
  1. TRAZODONE [Concomitant]
     Active Substance: TRAZODONE HYDROCHLORIDE
  2. LINZESS [Suspect]
     Active Substance: LINACLOTIDE
     Indication: IRRITABLE BOWEL SYNDROME
     Route: 048
     Dates: start: 20181108, end: 20190403
  3. BUSPIRONE 10 MG [Concomitant]
  4. SUBOXONE [Concomitant]
     Active Substance: BUPRENORPHINE HYDROCHLORIDE\NALOXONE HYDROCHLORIDE
  5. SERTRALINE [Concomitant]
     Active Substance: SERTRALINE HYDROCHLORIDE
  6. GABAPENTIN 600 MG TID [Concomitant]

REACTIONS (9)
  - Systemic inflammatory response syndrome [None]
  - Hypokalaemia [None]
  - Acute kidney injury [None]
  - Vomiting [None]
  - Dehydration [None]
  - Colitis [None]
  - Hyponatraemia [None]
  - Leukocytosis [None]
  - Nausea [None]

NARRATIVE: CASE EVENT DATE: 20190422
